FAERS Safety Report 20263723 (Version 1)
Quarter: 2021Q4

REPORT INFORMATION
  Report Type: Spontaneous
  Country: US (occurrence: None)
  Receive Date: 20211230
  Receipt Date: 20211230
  Transmission Date: 20220303
  Serious: Yes (Hospitalization)
  Sender: FDA-Public Use
  Company Number: None

PATIENT
  Age: 36 Year
  Sex: Male

DRUGS (1)
  1. CASIRIVIMAB\IMDEVIMAB [Suspect]
     Active Substance: CASIRIVIMAB\IMDEVIMAB
     Indication: COVID-19
     Route: 058
     Dates: start: 20211228, end: 20211228

REACTIONS (13)
  - Dyspnoea [None]
  - Cough [None]
  - Mental status changes [None]
  - Poverty of speech [None]
  - Cerebrovascular accident [None]
  - Infection [None]
  - Acute respiratory failure [None]
  - COVID-19 pneumonia [None]
  - Pancreatitis [None]
  - Troponin increased [None]
  - Acute kidney injury [None]
  - Electrolyte imbalance [None]
  - Adverse drug reaction [None]

NARRATIVE: CASE EVENT DATE: 20211229
